FAERS Safety Report 23393688 (Version 1)
Quarter: 2024Q1

REPORT INFORMATION
  Report Type: Spontaneous
  Country: US (occurrence: US)
  Receive Date: 20240111
  Receipt Date: 20240111
  Transmission Date: 20240410
  Serious: Yes (Other)
  Sender: FDA-Public Use
  Company Number: US-PFIZER INC-202400004969

PATIENT

DRUGS (1)
  1. PAXLOVID [Suspect]
     Active Substance: NIRMATRELVIR\RITONAVIR
     Indication: COVID-19 treatment
     Dosage: UNK

REACTIONS (31)
  - Arrhythmia [Unknown]
  - Seizure [Unknown]
  - Illness [Unknown]
  - Fatigue [Unknown]
  - Trichorrhexis [Unknown]
  - Feeling cold [Unknown]
  - Anxiety [Unknown]
  - Post-traumatic stress disorder [Unknown]
  - Feeling abnormal [Unknown]
  - Depression [Unknown]
  - Brain fog [Unknown]
  - Disturbance in attention [Unknown]
  - Thyroid disorder [Unknown]
  - Anaemia [Unknown]
  - Blood cholesterol abnormal [Unknown]
  - Blood triglycerides abnormal [Unknown]
  - Serum ferritin abnormal [Unknown]
  - Memory impairment [Unknown]
  - Migraine [Unknown]
  - Insomnia [Unknown]
  - Blood pressure fluctuation [Unknown]
  - Blood pressure abnormal [Unknown]
  - Laboratory test abnormal [Unknown]
  - Cognitive disorder [Unknown]
  - Sinusitis [Unknown]
  - Ear infection [Unknown]
  - Abdominal discomfort [Unknown]
  - Abdominal distension [Unknown]
  - Gastrointestinal pain [Unknown]
  - Hyperchlorhydria [Unknown]
  - Sputum discoloured [Unknown]
